FAERS Safety Report 6913973-X (Version None)
Quarter: 2010Q3

REPORT INFORMATION
  Report Type: 
  Country: None (occurrence: None)
  Receive Date: 20100809
  Receipt Date: 20100725
  Transmission Date: 20110219
  Serious: Yes (Other)
  Sender: FDA-Public Use
  Company Number: PHHY2010AU38912

PATIENT
  Sex: Male
  Weight: 75 kg

DRUGS (14)
  1. ACLASTA [Suspect]
     Indication: OSTEOPOROSIS
     Dosage: 5MG/100ML
     Dates: start: 20100525
  2. ADALAT [Concomitant]
     Dosage: 20MG [30], ONCE DAILY
  3. CALTRATE [Concomitant]
     Dosage: 600 MGM [100] - 1 B.D
  4. LANOXIN [Concomitant]
     Dosage: 250 MGM [100] ONCE DAILY
  5. NEMDYN OTIC [Concomitant]
     Dosage: 10 G [1] - APPLY SPARINGLY TO SCORE ATLEAST DAILY
  6. PANAMAX [Concomitant]
     Dosage: 500 MGM [300] - 2 B.D WITH FOOD ROUTINELY
  7. PRAVACHOL [Concomitant]
     Dosage: 20 MGM [30] - ONCE DAILY
  8. PULMICORT [Concomitant]
     Dosage: 400 MCG [ONE] - 2 DOSES INHALED BD
  9. SOMAC [Concomitant]
     Dosage: 40 MGM [30] - 1 AFTER TEA DAILY
  10. TEVETENS PLUS [Concomitant]
     Dosage: [28] - ONCE DAILY
  11. VITAMIN D [Concomitant]
     Dosage: 50,000 (AS PER MALOUF'S MANUFACTURING PHARMACY) [16]-1 STAT, ONE IN 2 WEEKS THEN 1 SWALLOWED MONTHLY
  12. WARFARIN [Concomitant]
     Dosage: 1 MGM [50] STRICTLY AS DIRECTED
  13. WARFARIN SODIUM [Concomitant]
     Dosage: 3 MGM [50] - STRICTLY AS DIRECTED
  14. ZYLOPRIM [Concomitant]
     Dosage: 300 MGM [60] - ONCE DAILY

REACTIONS (11)
  - ARTHRALGIA [None]
  - BLOOD ALBUMIN INCREASED [None]
  - BLOOD BILIRUBIN INCREASED [None]
  - C-REACTIVE PROTEIN INCREASED [None]
  - GAMMA-GLUTAMYLTRANSFERASE INCREASED [None]
  - INFLUENZA LIKE ILLNESS [None]
  - MONOCYTE COUNT INCREASED [None]
  - MYALGIA [None]
  - NEUTROPHILIA [None]
  - RED BLOOD CELL COUNT INCREASED [None]
  - WHITE BLOOD CELL COUNT INCREASED [None]
